FAERS Safety Report 10447467 (Version 1)
Quarter: 2014Q3

REPORT INFORMATION
  Report Type: Spontaneous
  Country: US (occurrence: None)
  Receive Date: 20140910
  Receipt Date: 20140910
  Transmission Date: 20150326
  Serious: Yes (Hospitalization)
  Sender: FDA-Public Use
  Company Number: None

PATIENT
  Age: 3 Year
  Sex: Male
  Weight: 16.2 kg

DRUGS (5)
  1. METHOTREXATE [Suspect]
     Active Substance: METHOTREXATE
  2. DEXAMETHASONE. [Suspect]
     Active Substance: DEXAMETHASONE
  3. VINCRISTINE SULFATE. [Suspect]
     Active Substance: VINCRISTINE SULFATE
  4. CYTARABINE. [Suspect]
     Active Substance: CYTARABINE
  5. ONCASPAR [Suspect]
     Active Substance: PEGASPARGASE

REACTIONS (19)
  - Blood pressure inadequately controlled [None]
  - Hyperglycaemia [None]
  - Pulmonary haemorrhage [None]
  - Convulsion [None]
  - Drooling [None]
  - Left ventricular hypertrophy [None]
  - Fluid retention [None]
  - Oedema [None]
  - Respiratory moniliasis [None]
  - Haemorrhage intracranial [None]
  - Weight increased [None]
  - Continuous haemodiafiltration [None]
  - Lung infiltration [None]
  - Renal failure acute [None]
  - Posterior reversible encephalopathy syndrome [None]
  - General physical health deterioration [None]
  - Irritability [None]
  - Hypoxia [None]
  - Bradycardia [None]

NARRATIVE: CASE EVENT DATE: 20140831
